FAERS Safety Report 11380052 (Version 2)
Quarter: 2015Q3

REPORT INFORMATION
  Report Type: Report from Study
  Country: US (occurrence: US)
  Receive Date: 20150814
  Receipt Date: 20150820
  Transmission Date: 20151125
  Serious: Yes (Hospitalization)
  Sender: FDA-Public Use
  Company Number: PHHO2015US012866

PATIENT
  Age: 69 Year
  Sex: Female
  Weight: 62.1 kg

DRUGS (5)
  1. MYCOPHENOLATE MOFETIL. [Concomitant]
     Active Substance: MYCOPHENOLATE MOFETIL
     Indication: CHRONIC GRAFT VERSUS HOST DISEASE
     Dosage: 1 G, QD
     Route: 048
     Dates: start: 20070530, end: 20150803
  2. FLUID/ELECTROLYTE REPLACEMENT THERAPY [Suspect]
     Active Substance: UNSPECIFIED INGREDIENT
     Indication: SMALL INTESTINAL OBSTRUCTION
     Route: 042
  3. PREDNISONE. [Concomitant]
     Active Substance: PREDNISONE
     Indication: CHRONIC GRAFT VERSUS HOST DISEASE
     Dosage: 5 MG, QD
     Route: 048
     Dates: start: 20070305, end: 20150803
  4. ODOMZO [Suspect]
     Active Substance: SONIDEGIB
     Indication: CHRONIC GRAFT VERSUS HOST DISEASE
     Dosage: 400 MG, QD
     Route: 048
     Dates: start: 20150701, end: 20150804
  5. ODOMZO [Suspect]
     Active Substance: SONIDEGIB
     Dosage: 400 MG, QD
     Route: 048
     Dates: start: 20150812

REACTIONS (2)
  - Cardiac failure congestive [Recovered/Resolved]
  - Small intestinal obstruction [Recovered/Resolved]

NARRATIVE: CASE EVENT DATE: 20150804
